FAERS Safety Report 4403118-2 (Version None)
Quarter: 2004Q3

REPORT INFORMATION
  Report Type: 
  Country: None (occurrence: None)
  Receive Date: 20040721
  Receipt Date: 20040709
  Transmission Date: 20050211
  Serious: Yes (Other)
  Sender: FDA-Public Use
  Company Number: GB-BRISTOL-MYERS SQUIBB COMPANY-12639100

PATIENT
  Sex: Female

DRUGS (3)
  1. VIDEX [Suspect]
     Route: 048
  2. ZIDOVUDINE [Concomitant]
     Route: 048
  3. NEVIRAPINE [Concomitant]
     Route: 048

REACTIONS (2)
  - HAEMATEMESIS [None]
  - PORTAL VEIN THROMBOSIS [None]
